FAERS Safety Report 7014550-5 (Version None)
Quarter: 2010Q3

REPORT INFORMATION
  Report Type: 
  Country: None (occurrence: None)
  Receive Date: 20100927
  Receipt Date: 20100914
  Transmission Date: 20110219
  Serious: Yes (Hospitalization, Other)
  Sender: FDA-Public Use
  Company Number: US-ELI_LILLY_AND_COMPANY-US201009004006

PATIENT
  Age: 84 Year
  Sex: Female

DRUGS (1)
  1. EVISTA [Suspect]
     Indication: OSTEOPOROSIS
     Dosage: 60 MG, DAILY (1/D)
     Route: 065

REACTIONS (5)
  - CHEST PAIN [None]
  - FALL [None]
  - GLAUCOMA [None]
  - HEART RATE DECREASED [None]
  - LOSS OF CONSCIOUSNESS [None]
